FAERS Safety Report 7512222-1 (Version None)
Quarter: 2011Q2

REPORT INFORMATION
  Report Type: 
  Country: None (occurrence: None)
  Receive Date: 20110531
  Receipt Date: 20101207
  Transmission Date: 20111010
  Serious: Yes (Hospitalization, Other)
  Sender: FDA-Public Use
  Company Number: US-BAYER-201023973NA

PATIENT
  Age: 36 Year
  Sex: Female
  Weight: 69.841 kg

DRUGS (4)
  1. RHINOCORT [Concomitant]
  2. ALLEGRA D 24 HOUR [Concomitant]
  3. ASTELIN [Concomitant]
  4. YASMIN [Suspect]
     Indication: PRODUCT USED FOR UNKNOWN INDICATION
     Dosage: UNK UNK, QD
     Route: 048
     Dates: start: 20011201, end: 20080902

REACTIONS (5)
  - BILIARY DYSKINESIA [None]
  - GALLBLADDER INJURY [None]
  - CHOLECYSTITIS CHRONIC [None]
  - INJURY [None]
  - PAIN [None]
